FAERS Safety Report 16613654 (Version 1)
Quarter: 2019Q3

REPORT INFORMATION
  Report Type: Report from Study
  Country: BR (occurrence: BR)
  Receive Date: 20190723
  Receipt Date: 20190723
  Transmission Date: 20191004
  Serious: Yes (Other)
  Sender: FDA-Public Use
  Company Number: BR-ROCHE-1995204

PATIENT
  Sex: Male
  Weight: 75 kg

DRUGS (8)
  1. ESBRIET [Suspect]
     Active Substance: PIRFENIDONE
     Indication: IDIOPATHIC PULMONARY FIBROSIS
     Dosage: 9 CAPSULES DAILY
     Route: 048
     Dates: start: 20170303
  2. INSULIN [Concomitant]
     Active Substance: INSULIN NOS
  3. ESBRIET [Suspect]
     Active Substance: PIRFENIDONE
     Dosage: 6 CAPSULES DAILY
     Route: 048
     Dates: start: 20170913
  4. JANUMET [Concomitant]
     Active Substance: METFORMIN HYDROCHLORIDE\SITAGLIPTIN PHOSPHATE
  5. ESBRIET [Suspect]
     Active Substance: PIRFENIDONE
     Route: 048
  6. PANTOPRAZOLE [Concomitant]
     Active Substance: PANTOPRAZOLE
     Indication: PRODUCT USED FOR UNKNOWN INDICATION
     Route: 065
  7. TAMSULOSIN HYDROCHLORIDE. [Concomitant]
     Active Substance: TAMSULOSIN HYDROCHLORIDE
  8. ATENOLOL. [Concomitant]
     Active Substance: ATENOLOL

REACTIONS (11)
  - Nausea [Not Recovered/Not Resolved]
  - Chest pain [Unknown]
  - Treatment noncompliance [Unknown]
  - Dizziness [Unknown]
  - Fatigue [Recovering/Resolving]
  - Respiratory disorder [Unknown]
  - Decreased appetite [Not Recovered/Not Resolved]
  - Dyspnoea [Recovering/Resolving]
  - Diabetes mellitus inadequate control [Recovered/Resolved]
  - Intentional product misuse [Unknown]
  - Nervousness [Unknown]
